FAERS Safety Report 20577457 (Version 2)
Quarter: 2022Q1

REPORT INFORMATION
  Report Type: Report from Study
  Country: CO (occurrence: CO)
  Receive Date: 20220310
  Receipt Date: 20220325
  Transmission Date: 20220423
  Serious: Yes (Hospitalization, Other)
  Sender: FDA-Public Use
  Company Number: CO-ASTELLAS-2022US006648

PATIENT
  Age: 66 Year
  Sex: Male
  Weight: 52 kg

DRUGS (1)
  1. TACROLIMUS [Suspect]
     Active Substance: TACROLIMUS
     Indication: Heart transplant
     Dosage: 0.5 MG, ONCE DAILY
     Route: 048
     Dates: start: 20191125

REACTIONS (4)
  - Weight decreased [Recovering/Resolving]
  - Bacterial diarrhoea [Recovered/Resolved]
  - Blood creatinine increased [Recovering/Resolving]
  - Faeces discoloured [Recovering/Resolving]

NARRATIVE: CASE EVENT DATE: 20211101
